FAERS Safety Report 24218199 (Version 1)
Quarter: 2024Q3

REPORT INFORMATION
  Report Type: Spontaneous
  Country: US (occurrence: US)
  Receive Date: 20240816
  Receipt Date: 20240816
  Transmission Date: 20241017
  Serious: Yes (Other)
  Sender: PFIZER
  Company Number: US-PFIZER INC-202400236015

PATIENT
  Age: 88 Year
  Sex: Female

DRUGS (2)
  1. IBRANCE [Suspect]
     Active Substance: PALBOCICLIB
     Dosage: 100MG CAPSULES QD (ONCE A DAY) FOR 21 DAYS WITH 7 DAY OFF
     Dates: start: 20240716
  2. IBRANCE [Suspect]
     Active Substance: PALBOCICLIB
     Dosage: DOUBLED HER DOSE
     Dates: start: 20240812, end: 20240812

REACTIONS (2)
  - Vomiting [Recovered/Resolved]
  - Overdose [Unknown]

NARRATIVE: CASE EVENT DATE: 20240716
